FAERS Safety Report 10311855 (Version 1)
Quarter: 2014Q3

REPORT INFORMATION
  Report Type: Other
  Country: GB (occurrence: GB)
  Receive Date: 20140717
  Receipt Date: 20140717
  Transmission Date: 20150326
  Serious: Yes (Hospitalization, Other)
  Sender: FDA-Public Use
  Company Number: GB-ENDO PHARMACEUTICALS INC-METF20140004

PATIENT
  Age: 39 Year
  Sex: Female

DRUGS (4)
  1. LEVEMIR [Suspect]
     Active Substance: INSULIN DETEMIR
     Indication: DIABETES MELLITUS
     Dosage: 15 UNITS
  2. NOVORAPID [Suspect]
     Active Substance: INSULIN ASPART
     Indication: DIABETES MELLITUS
     Dosage: 24 UNITS
  3. METFORMIN HYDROCHLORIDE TABLETS 500MG [Suspect]
     Active Substance: METFORMIN HYDROCHLORIDE
     Indication: DIABETES MELLITUS
     Route: 048
  4. RUSCUS ACULEATUS [Suspect]
     Active Substance: RUSCUS ACULEATUS ROOT
     Indication: POOR PERIPHERAL CIRCULATION
     Dosage: UNKNOWN
     Route: 048

REACTIONS (10)
  - Diabetic ketoacidosis [Recovered/Resolved]
  - Joint swelling [None]
  - Vomiting [None]
  - Neutrophilia [None]
  - Diarrhoea [None]
  - Dehydration [None]
  - Herbal interaction [Recovered/Resolved]
  - Sinus tachycardia [None]
  - Hyperkalaemia [None]
  - Hyperglycaemia [None]

NARRATIVE: CASE EVENT DATE: 201309
